FAERS Safety Report 5806991-6 (Version None)
Quarter: 2008Q3

REPORT INFORMATION
  Report Type: 
  Country: None (occurrence: None)
  Receive Date: 20080711
  Receipt Date: 20080709
  Transmission Date: 20090109
  Serious: Yes (Other)
  Sender: FDA-Public Use
  Company Number: DE-BAYER-200817663GPV

PATIENT
  Age: 80 Year
  Sex: Male
  Weight: 79 kg

DRUGS (1)
  1. KOGENATE FS [Suspect]
     Indication: HAEMOPHILIA
     Route: 065
     Dates: start: 20080219, end: 20080409

REACTIONS (2)
  - FACTOR VIII INHIBITION [None]
  - HAEMATURIA [None]
